FAERS Safety Report 23739698 (Version 1)
Quarter: 2024Q2

REPORT INFORMATION
  Report Type: Spontaneous
  Country: CZ (occurrence: CZ)
  Receive Date: 20240414
  Receipt Date: 20240414
  Transmission Date: 20240716
  Serious: Yes (Other)
  Sender: FDA-Public Use
  Company Number: CZ-GLAXOSMITHKLINE-CZ2024EME037489

PATIENT
  Age: 66 Year
  Sex: Female

DRUGS (1)
  1. ACYCLOVIR [Suspect]
     Active Substance: ACYCLOVIR
     Indication: Encephalitis herpes
     Dosage: 10 MILLILITRE PER KILOGRAM  (Q8HR)
     Route: 042

REACTIONS (1)
  - Haemorrhage [Unknown]
